FAERS Safety Report 18840701 (Version 1)
Quarter: 2021Q1

REPORT INFORMATION
  Report Type: Report from Study
  Country: AR (occurrence: AR)
  Receive Date: 20210204
  Receipt Date: 20210204
  Transmission Date: 20210419
  Serious: Yes (Hospitalization, Other)
  Sender: FDA-Public Use
  Company Number: AR-EMD SERONO-9215827

PATIENT
  Sex: Female

DRUGS (1)
  1. REBIF [Suspect]
     Active Substance: INTERFERON BETA-1A
     Indication: MULTIPLE SCLEROSIS
     Route: 058
     Dates: start: 20180807

REACTIONS (5)
  - Influenza like illness [Unknown]
  - Injection site pain [Unknown]
  - Hypertonic bladder [Unknown]
  - Urinary tract infection [Unknown]
  - Ischaemic stroke [Unknown]
